FAERS Safety Report 5695968-X (Version None)
Quarter: 2008Q2

REPORT INFORMATION
  Report Type: 
  Country: None (occurrence: None)
  Receive Date: 20080407
  Receipt Date: 20080327
  Transmission Date: 20081010
  Serious: Yes (Death, Hospitalization)
  Sender: FDA-Public Use
  Company Number: GB-AMGEN-UK271225

PATIENT
  Sex: Female
  Weight: 78.5 kg

DRUGS (5)
  1. PANITUMUMAB [Suspect]
     Indication: COLORECTAL CANCER
     Route: 041
     Dates: start: 20080211, end: 20080311
  2. IRINOTECAN HCL [Suspect]
     Route: 041
     Dates: start: 20080211, end: 20080311
  3. ENOXAPARIN SODIUM [Concomitant]
     Route: 065
  4. METFORMIN HCL [Concomitant]
     Route: 065
  5. CANDESARTAN CILEXETIL [Concomitant]
     Route: 065

REACTIONS (4)
  - ABDOMINAL PAIN [None]
  - NAUSEA [None]
  - NEUTROPENIC SEPSIS [None]
  - VOMITING [None]
